FAERS Safety Report 11133111 (Version 1)
Quarter: 2015Q2

REPORT INFORMATION
  Report Type: Spontaneous
  Country: US (occurrence: US)
  Receive Date: 20150522
  Receipt Date: 20150522
  Transmission Date: 20150821
  Serious: No
  Sender: FDA-Public Use
  Company Number: US-MYLANLABS-2014M1013153

PATIENT
  Age: 66 Year
  Sex: Female
  Weight: 54.42 kg

DRUGS (1)
  1. PAROXETINE HYDROCHLORIDE CONTROLLED-RELEASE [Suspect]
     Active Substance: PAROXETINE HYDROCHLORIDE
     Dosage: 37.5 MG, QD
     Route: 048
     Dates: start: 201308

REACTIONS (3)
  - Depression [Not Recovered/Not Resolved]
  - Memory impairment [Not Recovered/Not Resolved]
  - Cognitive disorder [Not Recovered/Not Resolved]

NARRATIVE: CASE EVENT DATE: 201411
